FAERS Safety Report 11358741 (Version 1)
Quarter: 2015Q3

REPORT INFORMATION
  Report Type: Spontaneous
  Country: US (occurrence: None)
  Receive Date: 20150806
  Receipt Date: 20150806
  Transmission Date: 20151125
  Serious: Yes (Death, Hospitalization)
  Sender: FDA-Public Use
  Company Number: 2015HINLIT0645

PATIENT
  Age: 19 Year
  Sex: Male

DRUGS (3)
  1. QUINUPRISTIN/DALFOPRISTIN [Concomitant]
  2. LINEZOLID (LINEZOLID) UNKNOWN [Suspect]
     Active Substance: LINEZOLID
     Indication: ENTEROCOCCAL INFECTION
  3. TIGECYCLINE. [Concomitant]
     Active Substance: TIGECYCLINE

REACTIONS (5)
  - Candida infection [None]
  - Death [None]
  - Treatment failure [None]
  - Pneumonia fungal [None]
  - Drug resistance [None]
